FAERS Safety Report 4634733-9 (Version None)
Quarter: 2005Q2

REPORT INFORMATION
  Report Type: 
  Country: None (occurrence: None)
  Receive Date: 20050413
  Receipt Date: 20050413
  Transmission Date: 20051028
  Serious: No
  Sender: FDA-Public Use
  Company Number: None

PATIENT
  Age: 35 Year
  Sex: Female

DRUGS (1)
  1. CILOSTAZOL [Suspect]
     Dosage: ONE DOSE ONLY

REACTIONS (4)
  - DIZZINESS [None]
  - HYPOAESTHESIA [None]
  - THROAT TIGHTNESS [None]
  - TREMOR [None]
